FAERS Safety Report 7113787-4 (Version None)
Quarter: 2010Q4

REPORT INFORMATION
  Report Type: 
  Country: None (occurrence: None)
  Receive Date: 20101119
  Receipt Date: 20101109
  Transmission Date: 20110411
  Serious: Yes (Death, Hospitalization)
  Sender: FDA-Public Use
  Company Number: US-ACTELION-A-US2010-41537

PATIENT

DRUGS (10)
  1. BOSENTAN TABLET 125 MG US [Suspect]
     Indication: PULMONARY ARTERIAL HYPERTENSION
     Dosage: 125 MG, BID
     Route: 048
     Dates: start: 20090817, end: 20100923
  2. LISINOPRIL [Concomitant]
     Dosage: UNK
     Dates: end: 20101001
  3. LASIX [Concomitant]
     Dosage: UNK
     Dates: end: 20101001
  4. DILTIAZEM [Concomitant]
  5. ULTRAM [Concomitant]
  6. POTASSIUM CHLORIDE [Concomitant]
  7. PROAIR HFA [Concomitant]
  8. IMURAN [Concomitant]
  9. REVATIO [Concomitant]
  10. CALCIUM CHANNEL BLOCKERS [Concomitant]

REACTIONS (21)
  - ASCITES [None]
  - ASTHENIA [None]
  - CARDIO-RESPIRATORY ARREST [None]
  - DECREASED APPETITE [None]
  - DIARRHOEA [None]
  - DYSPNOEA [None]
  - FLUID OVERLOAD [None]
  - HELICOBACTER INFECTION [None]
  - HEPATIC CONGESTION [None]
  - HYPOTENSION [None]
  - INTERSTITIAL LUNG DISEASE [None]
  - JAUNDICE [None]
  - JAUNDICE CHOLESTATIC [None]
  - NAUSEA [None]
  - OEDEMA [None]
  - PULMONARY HYPERTENSION [None]
  - RIGHT VENTRICULAR FAILURE [None]
  - SCLERODERMA [None]
  - SKIN ULCER [None]
  - TRANSFUSION [None]
  - VOMITING [None]
